FAERS Safety Report 17287007 (Version 1)
Quarter: 2020Q1

REPORT INFORMATION
  Report Type: Spontaneous
  Country: US (occurrence: US)
  Receive Date: 20200120
  Receipt Date: 20200120
  Transmission Date: 20200409
  Serious: Yes (Hospitalization, Other)
  Sender: FDA-Public Use
  Company Number: US-AUROBINDO-AUR-APL-2020-002599

PATIENT
  Age: 79 Year
  Sex: Male

DRUGS (7)
  1. IPILIMUMAB [Concomitant]
     Active Substance: IPILIMUMAB
     Indication: INTRAOCULAR MELANOMA
     Dosage: UNK UNK, CYCLICAL
     Route: 065
  2. NIVOLUMAB [Concomitant]
     Active Substance: NIVOLUMAB
     Indication: METASTASES TO LIVER
  3. MORPHINE [Concomitant]
     Active Substance: MORPHINE
     Indication: PAIN
     Dosage: UNK
     Route: 065
  4. IPILIMUMAB [Concomitant]
     Active Substance: IPILIMUMAB
     Indication: METASTASES TO LIVER
  5. MIRTAZAPINE. [Suspect]
     Active Substance: MIRTAZAPINE
     Indication: DECREASED APPETITE
     Dosage: UNK
     Route: 065
  6. MIRTAZAPINE. [Suspect]
     Active Substance: MIRTAZAPINE
     Indication: PAIN
  7. NIVOLUMAB [Concomitant]
     Active Substance: NIVOLUMAB
     Indication: MALIGNANT MELANOMA
     Dosage: UNK UNK, CYCLICAL
     Route: 065

REACTIONS (1)
  - Acute psychosis [Recovering/Resolving]
